FAERS Safety Report 20672767 (Version 4)
Quarter: 2024Q2

REPORT INFORMATION
  Report Type: Report from Study
  Country: JP (occurrence: JP)
  Receive Date: 20220405
  Receipt Date: 20240401
  Transmission Date: 20240715
  Serious: Yes (Other)
  Sender: FDA-Public Use
  Company Number: JP-NOVARTISPH-NVSJ2021JP014559

PATIENT
  Age: 3 Year
  Sex: Female
  Weight: 14.5 kg

DRUGS (2)
  1. KYMRIAH [Suspect]
     Active Substance: TISAGENLECLEUCEL
     Indication: Acute lymphocytic leukaemia recurrent
     Dosage: FULL DOSE ADMINISTERED, 0.5X10^8
     Route: 041
     Dates: start: 20210422
  2. FLUDARABINE [Concomitant]
     Active Substance: FLUDARABINE PHOSPHATE
     Indication: Chemotherapy
     Dosage: 120 MG/M2
     Route: 065
     Dates: start: 20210417

REACTIONS (13)
  - Hepatotoxicity [Recovered/Resolved]
  - Cytokine release syndrome [Recovered/Resolved]
  - Pyrexia [Unknown]
  - Hypoxia [Unknown]
  - Neurotoxicity [Recovered/Resolved]
  - Hypogammaglobulinaemia [Recovered/Resolved]
  - Hypogammaglobulinaemia [Recovered/Resolved]
  - Tumour lysis syndrome [Recovered/Resolved]
  - Hemiparesis [Unknown]
  - Paraparesis [Unknown]
  - Acute lymphocytic leukaemia recurrent [Unknown]
  - Aphasia [Unknown]
  - Arthritis infective [Unknown]

NARRATIVE: CASE EVENT DATE: 20210423
